FAERS Safety Report 14535466 (Version 1)
Quarter: 2018Q1

REPORT INFORMATION
  Report Type: Spontaneous
  Country: ES (occurrence: ES)
  Receive Date: 20180215
  Receipt Date: 20180215
  Transmission Date: 20180509
  Serious: Yes (Death, Hospitalization, Other)
  Sender: FDA-Public Use
  Company Number: ES-AUROBINDO-AUR-APL-2018-007323

PATIENT
  Age: 42 Year
  Sex: Male

DRUGS (5)
  1. TRYPTOPHAN                         /00215101/ [Suspect]
     Active Substance: TRYPTOPHAN
     Indication: PRODUCT USED FOR UNKNOWN INDICATION
  2. CITALOPRAM [Suspect]
     Active Substance: CITALOPRAM HYDROBROMIDE
     Dosage: IN TOTAL
  3. ALCOHOL. [Suspect]
     Active Substance: ALCOHOL
     Indication: PRODUCT USED FOR UNKNOWN INDICATION
  4. CITALOPRAM [Suspect]
     Active Substance: CITALOPRAM HYDROBROMIDE
     Indication: DEPRESSION
  5. TAURINE [Suspect]
     Active Substance: TAURINE
     Indication: PRODUCT USED FOR UNKNOWN INDICATION
     Dosage: 1-2 L A DAY ()

REACTIONS (5)
  - Intentional overdose [Not Recovered/Not Resolved]
  - Toxicity to various agents [Fatal]
  - Alcohol interaction [Not Recovered/Not Resolved]
  - Food interaction [Not Recovered/Not Resolved]
  - Serotonin syndrome [Fatal]
